FAERS Safety Report 12811414 (Version 1)
Quarter: 2016Q4

REPORT INFORMATION
  Report Type: Spontaneous
  Country: IT (occurrence: IT)
  Receive Date: 20161005
  Receipt Date: 20161005
  Transmission Date: 20170207
  Serious: Yes (Hospitalization, Other)
  Sender: FDA-Public Use
  Company Number: IT-INDIVIOR LIMITED-INDV-095255-2016

PATIENT
  Sex: Male

DRUGS (3)
  1. SUBOXONE [Suspect]
     Active Substance: BUPRENORPHINE HYDROCHLORIDE\NALOXONE HYDROCHLORIDE
     Dosage: DECREASED TO 2MG DAILY
     Route: 065
     Dates: start: 20160915
  2. SUBOXONE [Suspect]
     Active Substance: BUPRENORPHINE HYDROCHLORIDE\NALOXONE HYDROCHLORIDE
     Indication: PRODUCT USED FOR UNKNOWN INDICATION
     Dosage: MAXIMUM DOSAGE OF 8MG/DAY
     Route: 065
     Dates: start: 201602
  3. SUBOXONE [Suspect]
     Active Substance: BUPRENORPHINE HYDROCHLORIDE\NALOXONE HYDROCHLORIDE
     Dosage: UNK, SLOW DECREASING OF THE DOSAGE
     Route: 065
     Dates: start: 201606

REACTIONS (3)
  - Acute kidney injury [Recovered/Resolved]
  - Supraventricular tachycardia [Unknown]
  - Blood thyroid stimulating hormone increased [Not Recovered/Not Resolved]
